APPROVED DRUG PRODUCT: TOLCAPONE
Active Ingredient: TOLCAPONE
Strength: 100MG
Dosage Form/Route: TABLET;ORAL
Application: A208937 | Product #001 | TE Code: AB
Applicant: NOVAST LABORATORIES LTD
Approved: Aug 7, 2018 | RLD: No | RS: No | Type: RX